FAERS Safety Report 8331937-9 (Version None)
Quarter: 2012Q2

REPORT INFORMATION
  Report Type: 
  Country: None (occurrence: None)
  Receive Date: 20120502
  Receipt Date: 20120420
  Transmission Date: 20120825
  Serious: Yes (Hospitalization)
  Sender: FDA-Public Use
  Company Number: US-ELI_LILLY_AND_COMPANY-US201201003945

PATIENT
  Sex: Female

DRUGS (15)
  1. OMEPRAZOLE [Concomitant]
     Dosage: UNK, QD
  2. CITRACAL [Concomitant]
     Dosage: UNK, BID
  3. SEROQUEL [Concomitant]
     Dosage: UNK, EACH EVENING
  4. LEVOTHYROXINE SODIUM [Concomitant]
     Dosage: UNK, QD
  5. FUROSEMIDE [Concomitant]
     Dosage: UNK, QD
  6. SIMVASTATIN [Concomitant]
  7. VESICARE [Concomitant]
     Dosage: UNK, EACH MORNING
  8. HYDROCODONE [Concomitant]
     Indication: PAIN
     Dosage: UNK, PRN
  9. FORTEO [Suspect]
     Indication: OSTEOPOROSIS
     Dosage: 20 UG, QD
     Route: 065
     Dates: start: 20110101
  10. FORTEO [Suspect]
     Dosage: 20 UG, QD
     Route: 065
  11. FORTEO [Suspect]
     Dosage: 20 UG, QD
     Route: 065
  12. MULTI-VITAMINS [Concomitant]
     Dosage: UNK, EACH MORNING
  13. METOPROLOL TARTRATE [Concomitant]
     Dosage: UNK, BID
  14. FORTEO [Suspect]
     Dosage: 20 UG, QD
     Route: 065
  15. FORTEO [Suspect]
     Dosage: 20 UG, QD
     Route: 065

REACTIONS (11)
  - DRY MOUTH [None]
  - DRUG DOSE OMISSION [None]
  - INCORRECT STORAGE OF DRUG [None]
  - FATIGUE [None]
  - CONSTIPATION [None]
  - MALAISE [None]
  - ARTHRALGIA [None]
  - KNEE ARTHROPLASTY [None]
  - SURGERY [None]
  - PAIN IN EXTREMITY [None]
  - INAPPROPRIATE SCHEDULE OF DRUG ADMINISTRATION [None]
